FAERS Safety Report 5408527-0 (Version None)
Quarter: 2007Q3

REPORT INFORMATION
  Report Type: 
  Country: None (occurrence: None)
  Receive Date: 20070808
  Receipt Date: 20070726
  Transmission Date: 20080115
  Serious: Yes (Hospitalization)
  Sender: FDA-Public Use
  Company Number: US-JNJFOC-20061001867

PATIENT
  Sex: Female
  Weight: 100.7 kg

DRUGS (3)
  1. ORTHO EVRA [Suspect]
     Indication: DRUG USE FOR UNKNOWN INDICATION
  2. IBUPROFEN [Suspect]
     Dosage: VERY 3-4 HOURS
     Route: 065
  3. IBUPROFEN [Suspect]
     Indication: BACK PAIN
     Route: 065

REACTIONS (2)
  - DEEP VEIN THROMBOSIS [None]
  - NEPHROTIC SYNDROME [None]
